FAERS Safety Report 5425330-6 (Version None)
Quarter: 2007Q3

REPORT INFORMATION
  Report Type: 
  Country: None (occurrence: None)
  Receive Date: 20070824
  Receipt Date: 20070814
  Transmission Date: 20080115
  Serious: Yes (Hospitalization)
  Sender: FDA-Public Use
  Company Number: US-SHR-US-2007-030328

PATIENT
  Age: 53 Year
  Sex: Female

DRUGS (2)
  1. BETASERON [Suspect]
     Indication: RELAPSING-REMITTING MULTIPLE SCLEROSIS
     Dosage: 8 MIU, EVERY 2D
     Route: 058
     Dates: start: 20040810
  2. COREG [Concomitant]

REACTIONS (4)
  - ARRHYTHMIA [None]
  - ASTHENIA [None]
  - COLITIS [None]
  - HYPOAESTHESIA [None]
